FAERS Safety Report 6355116-X (Version None)
Quarter: 2009Q3

REPORT INFORMATION
  Report Type: 
  Country: None (occurrence: None)
  Receive Date: 20090914
  Receipt Date: 20090908
  Transmission Date: 20100115
  Serious: Yes (Life-Threatening)
  Sender: FDA-Public Use
  Company Number: US-ASTRAZENECA-2009SE11843

PATIENT
  Age: 55 Year
  Sex: Female

DRUGS (5)
  1. PROPOFOL [Suspect]
     Indication: STATUS EPILEPTICUS
     Route: 042
  2. PROPOFOL [Suspect]
  3. PROPOFOL [Suspect]
     Dosage: 70-110 UG/KG/MIN
  4. LORAZEPAM [Concomitant]
     Route: 042
  5. FOSPHENYTOIN [Concomitant]
     Route: 042

REACTIONS (1)
  - PROPOFOL INFUSION SYNDROME [None]
